FAERS Safety Report 25377355 (Version 7)
Quarter: 2025Q3

REPORT INFORMATION
  Report Type: Report from Study
  Country: US (occurrence: US)
  Receive Date: 20250530
  Receipt Date: 20250904
  Transmission Date: 20251021
  Serious: Yes (Hospitalization, Other)
  Sender: UCB
  Company Number: US-UCBSA-2025015720

PATIENT
  Sex: Female

DRUGS (28)
  1. FINTEPLA [Suspect]
     Active Substance: FENFLURAMINE
     Indication: Lennox-Gastaut syndrome
     Dosage: 5.9 MILLILITER, 2X/DAY (BID)
     Route: 048
     Dates: start: 20230718
  2. FINTEPLA [Suspect]
     Active Substance: FENFLURAMINE
     Dates: start: 20230801
  3. FINTEPLA [Suspect]
     Active Substance: FENFLURAMINE
     Dosage: 5.9 MILLILITER, 2X/DAY (BID)
     Route: 048
  4. FINTEPLA [Suspect]
     Active Substance: FENFLURAMINE
     Dosage: 5.9 MILLILITER, 2X/DAY (BID)
     Route: 048
     Dates: start: 20250325
  5. FINTEPLA [Suspect]
     Active Substance: FENFLURAMINE
  6. FINTEPLA [Suspect]
     Active Substance: FENFLURAMINE
     Dosage: 5.9 MILLILITER, 2X/DAY (BID)
  7. FINTEPLA [Suspect]
     Active Substance: FENFLURAMINE
     Dosage: 5.9 MILLILITER, 2X/DAY (BID)
  8. FINTEPLA [Suspect]
     Active Substance: FENFLURAMINE
     Dosage: 5.9 MILLILITER, 2X/DAY (BID)
  9. KEPPRA [Suspect]
     Active Substance: LEVETIRACETAM
     Indication: Product used for unknown indication
     Dosage: 20 MILLILITER, 2X/DAY (BID) (4000 MG DAILY)
  10. VALTOCO [Concomitant]
     Active Substance: DIAZEPAM
     Indication: Seizure
     Route: 045
     Dates: start: 20250403
  11. KLONOPIN [Concomitant]
     Active Substance: CLONAZEPAM
     Indication: Seizure
     Route: 048
     Dates: start: 20250403
  12. XCOPRI [Concomitant]
     Active Substance: CENOBAMATE
     Indication: Seizure
     Dosage: 100 MILLIGRAM, ONCE DAILY (QD)
     Route: 048
     Dates: start: 20250328
  13. CLOBAZAM [Concomitant]
     Active Substance: CLOBAZAM
     Indication: Seizure
     Route: 048
     Dates: start: 20250328
  14. HYDROCORTISONE [Concomitant]
     Active Substance: HYDROCORTISONE
     Indication: Product used for unknown indication
     Dates: start: 20241230
  15. HYDROCORTISONE [Concomitant]
     Active Substance: HYDROCORTISONE
  16. VITAMINS NOS [Concomitant]
     Active Substance: VITAMINS
     Indication: Product used for unknown indication
     Route: 048
     Dates: start: 20241230
  17. PROBIOTICS NOS [Concomitant]
     Active Substance: PROBIOTICS NOS
     Indication: Product used for unknown indication
     Route: 048
     Dates: start: 20241001
  18. VITAMIN B12 [Concomitant]
     Active Substance: CYANOCOBALAMIN
     Indication: Product used for unknown indication
     Route: 048
     Dates: start: 20240102
  19. FOLIC ACID [Concomitant]
     Active Substance: FOLIC ACID
     Indication: Product used for unknown indication
     Route: 048
     Dates: start: 20231206
  20. AMITRIPTYLINE [Concomitant]
     Active Substance: AMITRIPTYLINE
     Indication: Product used for unknown indication
     Route: 048
     Dates: start: 20231206
  21. AMITRIPTYLINE [Concomitant]
     Active Substance: AMITRIPTYLINE
  22. NORETHINDRONE ACETATE [Concomitant]
     Active Substance: NORETHINDRONE ACETATE
     Indication: Product used for unknown indication
     Route: 048
     Dates: start: 20230801
  23. LEVOTHYROXINE [Concomitant]
     Active Substance: LEVOTHYROXINE
     Indication: Product used for unknown indication
     Route: 048
     Dates: start: 20230801
  24. VITAMIN D3 [Concomitant]
     Active Substance: CHOLECALCIFEROL
     Indication: Product used for unknown indication
     Route: 048
     Dates: start: 20230801
  25. VITAMIN D3 [Concomitant]
     Active Substance: CHOLECALCIFEROL
  26. ESTRADIOL [Concomitant]
     Active Substance: ESTRADIOL
     Indication: Product used for unknown indication
     Route: 062
     Dates: start: 20230801
  27. NEXPLANON [Concomitant]
     Active Substance: ETONOGESTREL
     Indication: Product used for unknown indication
     Dates: start: 20230801
  28. GENOTROPIN [Concomitant]
     Active Substance: SOMATROPIN
     Indication: Product used for unknown indication
     Route: 058

REACTIONS (17)
  - Seizure [Not Recovered/Not Resolved]
  - Drop attacks [Not Recovered/Not Resolved]
  - Partial seizures [Unknown]
  - Atonic seizures [Not Recovered/Not Resolved]
  - Hypotension [Not Recovered/Not Resolved]
  - Fall [Not Recovered/Not Resolved]
  - Injury [Not Recovered/Not Resolved]
  - Syncope [Not Recovered/Not Resolved]
  - Loss of consciousness [Not Recovered/Not Resolved]
  - Tooth abscess [Unknown]
  - Dizziness postural [Not Recovered/Not Resolved]
  - Electrocardiogram ambulatory [Not Recovered/Not Resolved]
  - Dizziness [Not Recovered/Not Resolved]
  - Tooth avulsion [Not Recovered/Not Resolved]
  - Skin laceration [Not Recovered/Not Resolved]
  - Drug ineffective [Unknown]
  - Overdose [Unknown]

NARRATIVE: CASE EVENT DATE: 20240101
